FAERS Safety Report 11205030 (Version 1)
Quarter: 2015Q2

REPORT INFORMATION
  Report Type: Spontaneous
  Country: US (occurrence: None)
  Receive Date: 20150618
  Receipt Date: 20150618
  Transmission Date: 20150821
  Serious: Yes (Other)
  Sender: FDA-Public Use
  Company Number: None

PATIENT
  Age: 75 Year
  Sex: Female
  Weight: 63.5 kg

DRUGS (2)
  1. HYDROCODONE/ACETAMINOPHEN 10/325 MALLINCKRODT PH [Suspect]
     Active Substance: ACETAMINOPHEN\HYDROCODONE
     Indication: SCOLIOSIS
  2. HYDROCODONE/ACETAMINOPHEN 10/325 MALLINCKRODT PH [Suspect]
     Active Substance: ACETAMINOPHEN\HYDROCODONE
     Indication: RESTLESS LEGS SYNDROME

REACTIONS (4)
  - Drug effect decreased [None]
  - Product substitution issue [None]
  - Product quality issue [None]
  - Pain [None]

NARRATIVE: CASE EVENT DATE: 20150131
